FAERS Safety Report 18898248 (Version 3)
Quarter: 2021Q2

REPORT INFORMATION
  Report Type: Report from Study
  Country: TW (occurrence: TW)
  Receive Date: 20210216
  Receipt Date: 20210420
  Transmission Date: 20210717
  Serious: Yes (Death, Other)
  Sender: FDA-Public Use
  Company Number: TW-INCYTE CORPORATION-2021IN001121

PATIENT

DRUGS (1)
  1. JAKAVI [Suspect]
     Active Substance: RUXOLITINIB
     Indication: PRIMARY MYELOFIBROSIS
     Dosage: 40 MG, BID
     Route: 048
     Dates: start: 20190305

REACTIONS (15)
  - Haemoglobin decreased [Unknown]
  - Pulse absent [Unknown]
  - Dyspnoea [Unknown]
  - Cardiac arrest [Recovering/Resolving]
  - Hyperkalaemia [Unknown]
  - Pulmonary thrombosis [Unknown]
  - Fatigue [Unknown]
  - Discomfort [Unknown]
  - Bundle branch block right [Unknown]
  - Blood urea increased [Unknown]
  - Oxygen saturation decreased [Unknown]
  - Pneumonia [Fatal]
  - Blood potassium increased [Unknown]
  - Blood creatinine increased [Unknown]
  - White blood cell count increased [Unknown]

NARRATIVE: CASE EVENT DATE: 20201204
